FAERS Safety Report 7323943-8 (Version None)
Quarter: 2011Q1

REPORT INFORMATION
  Report Type: 
  Country: None (occurrence: None)
  Receive Date: 20110301
  Receipt Date: 20110222
  Transmission Date: 20110831
  Serious: Yes (Other)
  Sender: FDA-Public Use
  Company Number: B0699013A

PATIENT
  Sex: Male

DRUGS (2)
  1. SUSTIVA [Suspect]
  2. KIVEXA [Suspect]
     Indication: HIV INFECTION
     Route: 048
     Dates: start: 20070201

REACTIONS (4)
  - LICHENOID KERATOSIS [None]
  - RASH PAPULAR [None]
  - DERMATITIS [None]
  - RASH PRURITIC [None]
